FAERS Safety Report 9623093 (Version 1)
Quarter: 2013Q4

REPORT INFORMATION
  Report Type: Spontaneous
  Country: PT (occurrence: None)
  Receive Date: 20131010
  Receipt Date: 20131010
  Transmission Date: 20140711
  Serious: Yes (Other)
  Sender: FDA-Public Use
  Company Number: 1928190

PATIENT
  Age: 37 Year
  Sex: Female
  Weight: 86.5 kg

DRUGS (1)
  1. DOCETAXEL [Suspect]
     Indication: BREAST CANCER
     Route: 042
     Dates: start: 20130906, end: 20130906

REACTIONS (5)
  - Feeling hot [None]
  - Throat tightness [None]
  - Tachycardia [None]
  - Back pain [None]
  - Flushing [None]
